FAERS Safety Report 24553839 (Version 1)
Quarter: 2024Q4

REPORT INFORMATION
  Report Type: Spontaneous
  Country: DE (occurrence: DE)
  Receive Date: 20241028
  Receipt Date: 20241028
  Transmission Date: 20250114
  Serious: No
  Sender: ROCHE
  Company Number: DE-IPSEN Group, Research and Development-2024-15389

PATIENT
  Age: 21 Year
  Sex: Female

DRUGS (2)
  1. NUTROPIN AQ [Suspect]
     Active Substance: SOMATROPIN
     Indication: Chronic fatigue syndrome
     Route: 065
     Dates: start: 2008
  2. NUTROPIN AQ [Suspect]
     Active Substance: SOMATROPIN
     Indication: Off label use

REACTIONS (3)
  - Off label use [Unknown]
  - Product physical consistency issue [Unknown]
  - No adverse event [Unknown]
